FAERS Safety Report 11121006 (Version 1)
Quarter: 2015Q2

REPORT INFORMATION
  Report Type: Spontaneous
  Country: US (occurrence: US)
  Receive Date: 20150519
  Receipt Date: 20150519
  Transmission Date: 20150821
  Serious: No
  Sender: FDA-Public Use
  Company Number: US-ASTRAZENECA-2015SE43811

PATIENT
  Age: 25276 Day
  Sex: Female
  Weight: 81.6 kg

DRUGS (23)
  1. AMLODIPINE [Concomitant]
     Active Substance: AMLODIPINE BESYLATE
  2. BUTCHER^S BROOM [Concomitant]
     Active Substance: RUSCUS ACULEATUS ROOT
     Route: 048
  3. VITAMIN D3 [Concomitant]
     Active Substance: CHOLECALCIFEROL
     Route: 048
  4. AL GLUTAMINE [Concomitant]
  5. CHROMIUM [Concomitant]
     Active Substance: CHROMIC CHLORIDE\CHROMIUM
  6. METOPROLOL TARTRATE. [Concomitant]
     Active Substance: METOPROLOL TARTRATE
  7. ALPHA LIPID ACID [Concomitant]
  8. METFORMIN [Concomitant]
     Active Substance: METFORMIN HYDROCHLORIDE
     Route: 048
  9. PROBIOTICS [Concomitant]
     Active Substance: PROBIOTICS NOS
  10. VITAMIN K2 [Concomitant]
     Active Substance: MENAQUINONE 6
     Route: 048
  11. HYDROCHLORIC ACID [Concomitant]
     Active Substance: HYDROCHLORIC ACID
     Route: 048
  12. GLIMEPIRIDE. [Concomitant]
     Active Substance: GLIMEPIRIDE
     Route: 048
  13. BILBERRY EXTRACT [Concomitant]
     Route: 048
  14. BENFOTIAMINE [Concomitant]
     Active Substance: BENFOTIAMINE
     Route: 048
  15. MAGNESIUM [Concomitant]
     Active Substance: MAGNESIUM
     Route: 048
  16. SLIPPERY ELM [Concomitant]
     Route: 048
  17. LIVER AND GALLBLADDER CLEANSE [Concomitant]
  18. VITAMIN RAW B COMPLEX [Concomitant]
  19. BYDUREON [Suspect]
     Active Substance: EXENATIDE
     Indication: TYPE 2 DIABETES MELLITUS
     Route: 058
     Dates: start: 20150507
  20. GLUCOSAMINE MSM [Concomitant]
     Route: 048
  21. BEBEERINE [Concomitant]
  22. SELENIUM [Concomitant]
     Active Substance: SELENIUM
     Route: 048
  23. COA COENZYME 201 [Concomitant]

REACTIONS (2)
  - Feeling abnormal [Unknown]
  - Abdominal discomfort [Unknown]

NARRATIVE: CASE EVENT DATE: 20150507
